FAERS Safety Report 25586230 (Version 3)
Quarter: 2025Q3

REPORT INFORMATION
  Report Type: Spontaneous
  Country: JP (occurrence: JP)
  Receive Date: 20250721
  Receipt Date: 20250806
  Transmission Date: 20251020
  Serious: Yes (Other)
  Sender: PFIZER
  Company Number: JP-ONO-2025JP012665

PATIENT
  Age: 9 Decade
  Sex: Male

DRUGS (4)
  1. BRAFTOVI [Suspect]
     Active Substance: ENCORAFENIB
     Indication: Thyroid cancer
     Route: 048
  2. BRAFTOVI [Suspect]
     Active Substance: ENCORAFENIB
     Route: 048
  3. MEKTOVI [Suspect]
     Active Substance: BINIMETINIB
     Indication: Thyroid cancer
     Route: 048
  4. MEKTOVI [Suspect]
     Active Substance: BINIMETINIB
     Route: 048

REACTIONS (4)
  - Electrocardiogram QT prolonged [Unknown]
  - Serous retinal detachment [Recovering/Resolving]
  - Hypertension [Unknown]
  - Off label use [Unknown]
